FAERS Safety Report 25381213 (Version 3)
Quarter: 2025Q2

REPORT INFORMATION
  Report Type: Spontaneous
  Country: FR (occurrence: FR)
  Receive Date: 20250530
  Receipt Date: 20250626
  Transmission Date: 20250717
  Serious: No
  Sender: PFIZER
  Company Number: FR-PFIZER INC-PV202500004422

PATIENT
  Age: 8 Year
  Sex: Male

DRUGS (2)
  1. NGENLA [Suspect]
     Active Substance: SOMATROGON-GHLA
     Dosage: 12 MG, WEEKLY
     Route: 058
  2. NGENLA [Suspect]
     Active Substance: SOMATROGON-GHLA
     Route: 058

REACTIONS (7)
  - Emotional disorder [Not Recovered/Not Resolved]
  - Mood altered [Unknown]
  - Crying [Unknown]
  - Depression [Unknown]
  - Negative thoughts [Unknown]
  - Injection site pain [Unknown]
  - Patient-device incompatibility [Unknown]
